FAERS Safety Report 5054288-7 (Version None)
Quarter: 2006Q3

REPORT INFORMATION
  Report Type: 
  Country: None (occurrence: None)
  Receive Date: 20060713
  Receipt Date: 20060704
  Transmission Date: 20061208
  Serious: Yes (Other)
  Sender: FDA-Public Use
  Company Number: 2006083274

PATIENT
  Sex: Male
  Weight: 108.8633 kg

DRUGS (4)
  1. BENADRYL [Suspect]
     Indication: INSOMNIA
     Dosage: ORAL
     Route: 048
  2. ESZOPICLONE (ESZOPICLONE) [Concomitant]
  3. BUPROPION HYDROCHLORIDE [Concomitant]
  4. ALPRAZOLAM [Concomitant]

REACTIONS (2)
  - DYSURIA [None]
  - INCORRECT DOSE ADMINISTERED [None]
